FAERS Safety Report 11001565 (Version 1)
Quarter: 2015Q2

REPORT INFORMATION
  Report Type: Report from Study
  Country: US (occurrence: US)
  Receive Date: 20150408
  Receipt Date: 20150408
  Transmission Date: 20150821
  Serious: Yes (Other)
  Sender: FDA-Public Use
  Company Number: US-BAXTER-2015BAX013408

PATIENT
  Age: 32 Year
  Sex: Male
  Weight: 84.9 kg

DRUGS (1)
  1. HYQVIA [Suspect]
     Active Substance: HUMAN IMMUNOGLOBULIN G\HYALURONIDASE RECOMBINANT HUMAN
     Indication: IMMUNODEFICIENCY COMMON VARIABLE
     Route: 058
     Dates: start: 20150223

REACTIONS (4)
  - Skin swelling [Recovered/Resolved]
  - Infusion site extravasation [Recovered/Resolved]
  - Skin discomfort [Recovered/Resolved]
  - Chronic sinusitis [Not Recovered/Not Resolved]

NARRATIVE: CASE EVENT DATE: 20150223
